FAERS Safety Report 15283142 (Version 1)
Quarter: 2018Q3

REPORT INFORMATION
  Report Type: Spontaneous
  Country: US (occurrence: US)
  Receive Date: 20180731
  Receipt Date: 20180731
  Transmission Date: 20181010
  Serious: No
  Sender: FDA-Public Use
  Company Number: None

PATIENT
  Sex: Male

DRUGS (1)
  1. TREMFYA [Suspect]
     Active Substance: GUSELKUMAB
     Indication: PSORIASIS
     Dosage: ?          OTHER FREQUENCY:Q8W;?
     Route: 058
     Dates: start: 20180116

REACTIONS (6)
  - Infection [None]
  - Dizziness [None]
  - Anxiety [None]
  - Depression [None]
  - Dyspnoea [None]
  - Influenza like illness [None]
